FAERS Safety Report 7768709-X (Version None)
Quarter: 2011Q3

REPORT INFORMATION
  Report Type: 
  Country: None (occurrence: None)
  Receive Date: 20110922
  Receipt Date: 20100517
  Transmission Date: 20111222
  Serious: Yes (Hospitalization)
  Sender: FDA-Public Use
  Company Number: US-ASTRAZENECA-2009SE17649

PATIENT
  Age: 15186 Day
  Sex: Male

DRUGS (4)
  1. RISPERDAL [Concomitant]
     Dosage: 6 MG DAILY
     Route: 048
     Dates: start: 20020829
  2. DEPAKOTE ER [Concomitant]
     Route: 048
     Dates: start: 20020829
  3. SEROQUEL [Suspect]
     Route: 048
     Dates: start: 20020829
  4. CELEXA [Concomitant]
     Route: 048
     Dates: start: 20020829

REACTIONS (2)
  - TYPE 2 DIABETES MELLITUS [None]
  - HYPERGLYCAEMIC HYPEROSMOLAR NONKETOTIC SYNDROME [None]
